FAERS Safety Report 10591564 (Version 1)
Quarter: 2014Q4

REPORT INFORMATION
  Report Type: Spontaneous
  Country: US (occurrence: US)
  Receive Date: 20141118
  Receipt Date: 20141118
  Transmission Date: 20150529
  Serious: No
  Sender: FDA-Public Use
  Company Number: US-PFIZER INC-2014317225

PATIENT
  Sex: Male

DRUGS (3)
  1. HALDOL [Suspect]
     Active Substance: HALOPERIDOL
     Dosage: UNK
  2. ZOLOFT [Suspect]
     Active Substance: SERTRALINE HYDROCHLORIDE
     Dosage: UNK
  3. ZYPREXA [Suspect]
     Active Substance: OLANZAPINE
     Dosage: UNK

REACTIONS (1)
  - Drug hypersensitivity [Unknown]
